FAERS Safety Report 7802774-6 (Version None)
Quarter: 2011Q4

REPORT INFORMATION
  Report Type: 
  Country: None (occurrence: None)
  Receive Date: 20111005
  Receipt Date: 20110927
  Transmission Date: 20120403
  Serious: Yes (Other)
  Sender: FDA-Public Use
  Company Number: 2011SP043090

PATIENT
  Sex: Female

DRUGS (1)
  1. DESOGESTRE/ETHINYL ESTRADIOL [Suspect]
     Indication: PRODUCT USED FOR UNKNOWN INDICATION
     Dosage: 1 DF, QD, PO
     Route: 048

REACTIONS (1)
  - RENAL FAILURE CHRONIC [None]
